FAERS Safety Report 7456644-6 (Version None)
Quarter: 2011Q2

REPORT INFORMATION
  Report Type: 
  Country: None (occurrence: None)
  Receive Date: 20110503
  Receipt Date: 20110426
  Transmission Date: 20111010
  Serious: Yes (Hospitalization, Other)
  Sender: FDA-Public Use
  Company Number: FR-BAXTER-2011BH013108

PATIENT
  Age: 49 Year
  Sex: Female

DRUGS (3)
  1. CYCLOPHOSPHAMIDE [Suspect]
     Indication: SECONDARY PROGRESSIVE MULTIPLE SCLEROSIS
     Route: 042
     Dates: start: 20090930
  2. BACLOFEN [Suspect]
     Indication: MUSCLE SPASTICITY
     Route: 048
     Dates: start: 20080701
  3. TROSPIUM CHLORIDE [Suspect]
     Indication: URINARY INCONTINENCE
     Route: 048
     Dates: start: 20030101

REACTIONS (1)
  - BREAST CANCER STAGE II [None]
